FAERS Safety Report 9900625 (Version 1)
Quarter: 2014Q1

REPORT INFORMATION
  Report Type: Spontaneous
  Country: US (occurrence: US)
  Receive Date: 20140217
  Receipt Date: 20140217
  Transmission Date: 20141002
  Serious: No
  Sender: FDA-Public Use
  Company Number: US-BIOGENIDEC-2014BI014887

PATIENT
  Age: 57 Year
  Sex: Female

DRUGS (1)
  1. AVONEX [Suspect]
     Indication: MULTIPLE SCLEROSIS
     Route: 030
     Dates: start: 20030711

REACTIONS (4)
  - Lower extremity mass [Recovered/Resolved]
  - Hypoaesthesia [Recovered/Resolved]
  - Discomfort [Recovered/Resolved]
  - Musculoskeletal disorder [Recovered/Resolved]
